FAERS Safety Report 12758772 (Version 1)
Quarter: 2016Q3

REPORT INFORMATION
  Report Type: Spontaneous
  Country: US (occurrence: US)
  Receive Date: 20160918
  Receipt Date: 20160918
  Transmission Date: 20161109
  Serious: Yes (Disabling)
  Sender: FDA-Public Use
  Company Number: None

PATIENT
  Age: 44 Year
  Sex: Male
  Weight: 198 kg

DRUGS (2)
  1. HYOSCYAMINE. [Suspect]
     Active Substance: HYOSCYAMINE
     Indication: GASTRECTOMY
     Route: 060
     Dates: start: 20160603, end: 20160918
  2. OPTISOURCE BARIATRIC VITAMINS [Concomitant]

REACTIONS (3)
  - Fatigue [None]
  - Vision blurred [None]
  - Impaired work ability [None]

NARRATIVE: CASE EVENT DATE: 20160822
